FAERS Safety Report 19827893 (Version 1)
Quarter: 2021Q3

REPORT INFORMATION
  Report Type: Spontaneous
  Country: FR (occurrence: FR)
  Receive Date: 20210914
  Receipt Date: 20210914
  Transmission Date: 20211014
  Serious: Yes (Other)
  Sender: FDA-Public Use
  Company Number: FR-ACCORD-238192

PATIENT
  Age: 16 Year
  Sex: Male

DRUGS (5)
  1. LYRICA [Suspect]
     Active Substance: PREGABALIN
     Indication: PRODUCT USED FOR UNKNOWN INDICATION
     Dosage: 300 MG HARD CAPSULES, NOT SPECIFIED
     Route: 065
  2. NORDAZEPAM [Suspect]
     Active Substance: NORDAZEPAM
     Indication: PRODUCT USED FOR UNKNOWN INDICATION
     Dosage: NOT SPECIFIED
     Route: 065
  3. 3/4?METHYLENEDIOXY?N?METHYLAMPHETAMINE [Suspect]
     Active Substance: MIDOMAFETAMINE
     Indication: PRODUCT USED FOR UNKNOWN INDICATION
     Route: 065
  4. CLONAZEPAM. [Suspect]
     Active Substance: CLONAZEPAM
     Indication: PRODUCT USED FOR UNKNOWN INDICATION
     Route: 065
  5. CANNABIS SATIVA [Suspect]
     Active Substance: CANNABIS SATIVA FLOWERING TOP
     Indication: PRODUCT USED FOR UNKNOWN INDICATION
     Dosage: NOT SPECIFIED
     Route: 055

REACTIONS (2)
  - Fatigue [Recovered/Resolved]
  - Intentional product misuse [Unknown]

NARRATIVE: CASE EVENT DATE: 202106
